FAERS Safety Report 7636317 (Version 3)
Quarter: 2013Q1

REPORT INFORMATION
  Report Type: Report from Study
  Country: JP (occurrence: JP)
  Receive Date: 20101021
  Receipt Date: 20130211
  Transmission Date: 20140127
  Serious: Yes (Death, Life-Threatening, Other)
  Sender: FDA-Public Use
  Company Number: JP-ROCHE-724749

PATIENT
  Age: 61 None
  Sex: Male
  Weight: 53 kg

DRUGS (17)
  1. BEVACIZUMAB [Suspect]
     Indication: LUNG ADENOCARCINOMA METASTATIC
     Dosage: DOSAGE UNCERTAIN.
     Route: 041
  2. BEVACIZUMAB [Suspect]
     Route: 041
  3. BEVACIZUMAB [Suspect]
     Route: 041
  4. OSTELUC [Concomitant]
     Route: 048
  5. GASTER D [Concomitant]
     Indication: PROPHYLAXIS
     Route: 048
     Dates: start: 20100408, end: 20100811
  6. MAGNESIUM OXIDE [Concomitant]
     Indication: PROPHYLAXIS
     Route: 048
     Dates: start: 20100409, end: 20100811
  7. CALONAL [Concomitant]
     Indication: PAIN
     Route: 048
     Dates: start: 20100428, end: 20100811
  8. GABAPEN [Concomitant]
     Indication: PAIN
     Route: 048
     Dates: start: 20100510, end: 20100811
  9. MORPHINE HYDROCHLORIDE [Concomitant]
     Indication: PAIN
     Dosage: DRUG REPORTED AS : PACIF
     Route: 048
     Dates: start: 20100610, end: 20100811
  10. LASIX [Concomitant]
     Indication: PROPHYLAXIS
     Route: 048
     Dates: start: 20100604, end: 20100811
  11. CARBOPLATIN [Concomitant]
     Indication: LUNG ADENOCARCINOMA METASTATIC
     Route: 041
     Dates: start: 20100610, end: 20100610
  12. CARBOPLATIN [Concomitant]
     Indication: LUNG ADENOCARCINOMA METASTATIC
     Route: 041
     Dates: start: 20100708, end: 20100708
  13. CARBOPLATIN [Concomitant]
     Indication: LUNG ADENOCARCINOMA METASTATIC
     Route: 041
     Dates: start: 20100805, end: 20100805
  14. PACLITAXEL [Concomitant]
     Indication: LUNG ADENOCARCINOMA METASTATIC
     Route: 041
     Dates: start: 20100610, end: 20100624
  15. PACLITAXEL [Concomitant]
     Indication: LUNG ADENOCARCINOMA METASTATIC
     Route: 041
     Dates: start: 20100708, end: 20100722
  16. PACLITAXEL [Concomitant]
     Indication: LUNG ADENOCARCINOMA METASTATIC
     Route: 041
     Dates: start: 20100805, end: 20100805
  17. ACETAMINOPHEN [Concomitant]
     Route: 065

REACTIONS (10)
  - Bronchial fistula [Fatal]
  - Haemoptysis [Fatal]
  - Gallbladder perforation [Recovering/Resolving]
  - Large intestine perforation [Recovering/Resolving]
  - Pneumothorax [Recovering/Resolving]
  - Staphylococcal infection [Unknown]
  - Delirium [Unknown]
  - Dementia [Unknown]
  - Blood calcium decreased [Unknown]
  - Thrombosis [Unknown]
